FAERS Safety Report 8737485 (Version 2)
Quarter: 2013Q4

REPORT INFORMATION
  Report Type: Spontaneous
  Country: JP (occurrence: JP)
  Receive Date: 20120822
  Receipt Date: 20131031
  Transmission Date: 20140711
  Serious: Yes (Hospitalization)
  Sender: FDA-Public Use
  Company Number: JP-009507513-2012SP011754

PATIENT
  Age: 77 Year
  Sex: Female

DRUGS (1)
  1. TOREMIFENE CITRATE [Suspect]
     Dosage: 40 MG, QD
     Route: 048
     Dates: start: 20111128

REACTIONS (1)
  - Hepatitis acute [Recovered/Resolved]
